FAERS Safety Report 24875597 (Version 1)
Quarter: 2025Q1

REPORT INFORMATION
  Report Type: Spontaneous
  Country: US (occurrence: US)
  Receive Date: 20250122
  Receipt Date: 20250122
  Transmission Date: 20250409
  Serious: Yes (Other)
  Sender: CROWN LABORATORIES, INC.
  Company Number: US-Crown Laboratories, Inc.-2169593

PATIENT
  Age: 24 Year
  Sex: Female
  Weight: 56.7 kg

DRUGS (2)
  1. PANOXYL CLARIFYING EXFOLIANT [Suspect]
     Active Substance: SALICYLIC ACID
     Dates: start: 20250113, end: 20250113
  2. PANOXYL ACNE FOAMING WASH [Concomitant]
     Active Substance: BENZOYL PEROXIDE
     Dates: start: 20250113, end: 20250113

REACTIONS (10)
  - Paraesthesia [Unknown]
  - Skin tightness [Not Recovered/Not Resolved]
  - Dry throat [Not Recovered/Not Resolved]
  - Pain [Unknown]
  - Dysphagia [Recovered/Resolved]
  - Pruritus [Unknown]
  - Dyspnoea [Recovered/Resolved]
  - Application site exfoliation [Not Recovered/Not Resolved]
  - Application site pain [Not Recovered/Not Resolved]
  - Application site swelling [Not Recovered/Not Resolved]

NARRATIVE: CASE EVENT DATE: 20250113
